FAERS Safety Report 12220282 (Version 1)
Quarter: 2016Q1

REPORT INFORMATION
  Report Type: Spontaneous
  Country: US (occurrence: None)
  Receive Date: 20160329
  Receipt Date: 20160329
  Transmission Date: 20160526
  Serious: No
  Sender: FDA-Public Use
  Company Number: None

PATIENT
  Age: 54 Year
  Sex: Female

DRUGS (14)
  1. AFINITOR [Suspect]
     Active Substance: EVEROLIMUS
     Indication: BREAST CANCER
     Route: 048
     Dates: start: 20151217
  2. TRIAMT/HCT [Concomitant]
  3. DULOXETINE. [Concomitant]
     Active Substance: DULOXETINE
  4. ANASTROZOLE. [Concomitant]
     Active Substance: ANASTROZOLE
  5. ABILIFY [Concomitant]
     Active Substance: ARIPIPRAZOLE
  6. RAMIPRIL. [Concomitant]
     Active Substance: RAMIPRIL
  7. L-THYROXINE [Concomitant]
     Active Substance: LEVOTHYROXINE
  8. XGEVA [Concomitant]
     Active Substance: DENOSUMAB
  9. LAMISIL [Concomitant]
     Active Substance: TERBINAFINE HYDROCHLORIDE
  10. ARIPIPRAZOLE. [Concomitant]
     Active Substance: ARIPIPRAZOLE
  11. EXEMESTANE. [Concomitant]
     Active Substance: EXEMESTANE
  12. BUPROPN HCL [Concomitant]
     Active Substance: BUPROPION HYDROCHLORIDE
  13. POT CL MICRO [Concomitant]
  14. LEVOTHYROXIN [Concomitant]
     Active Substance: LEVOTHYROXINE

REACTIONS (3)
  - Headache [None]
  - Epistaxis [None]
  - Oropharyngeal pain [None]

NARRATIVE: CASE EVENT DATE: 20151217
